FAERS Safety Report 4538775-3 (Version None)
Quarter: 2004Q4

REPORT INFORMATION
  Report Type: 
  Country: None (occurrence: None)
  Receive Date: 20041222
  Receipt Date: 20041217
  Transmission Date: 20050328
  Serious: Yes (Hospitalization)
  Sender: FDA-Public Use
  Company Number: KII-2004-0014286

PATIENT
  Age: 2 Year
  Sex: Male

DRUGS (2)
  1. MORPHINE SULFATE [Suspect]
     Dosage: ORAL
     Route: 048
     Dates: start: 20041015, end: 20041015
  2. DECONGESTANTS AND ANTIALLERGICS [Concomitant]

REACTIONS (3)
  - ACCIDENTAL EXPOSURE [None]
  - ASTHMA [None]
  - CROUP INFECTIOUS [None]
